FAERS Safety Report 24328015 (Version 1)
Quarter: 2024Q3

REPORT INFORMATION
  Report Type: Spontaneous
  Country: CZ (occurrence: CZ)
  Receive Date: 20240917
  Receipt Date: 20240917
  Transmission Date: 20241016
  Serious: Yes (Death, Life-Threatening, Hospitalization, Other)
  Sender: BAUSCH AND LOMB
  Company Number: CZ-Blueprint Medicines Corporation-SP-CZ-2023-000030

PATIENT
  Age: 17 Year
  Sex: Male
  Weight: 116 kg

DRUGS (7)
  1. DEXAMETHASONE [Suspect]
     Active Substance: DEXAMETHASONE
     Indication: Oedema
     Dosage: 3 TO 4 MG/DAY
     Route: 065
     Dates: start: 202212, end: 202301
  2. DEXAMETHASONE [Suspect]
     Active Substance: DEXAMETHASONE
     Indication: Oedema
     Dosage: 3 TO 4 MG/DAY
     Route: 065
     Dates: start: 202212, end: 202301
  3. AVAPRITINIB [Suspect]
     Active Substance: AVAPRITINIB
     Indication: Brain stem glioma
     Route: 065
     Dates: start: 20221228, end: 20230120
  4. AVAPRITINIB [Suspect]
     Active Substance: AVAPRITINIB
     Indication: Malignant glioma
     Route: 065
  5. FAMOTIDINE [Concomitant]
     Active Substance: FAMOTIDINE
     Indication: Prophylaxis against gastrointestinal ulcer
     Dates: start: 202212, end: 202302
  6. NEURONTIN [Concomitant]
     Active Substance: GABAPENTIN
     Indication: Tremor
     Dates: start: 20220107, end: 202302
  7. CLOBAZAM [Concomitant]
     Active Substance: CLOBAZAM
     Indication: Tremor
     Dates: start: 2022, end: 202302

REACTIONS (3)
  - Neoplasm progression [Fatal]
  - Haemorrhage intracranial [Not Recovered/Not Resolved]
  - Off label use [Unknown]

NARRATIVE: CASE EVENT DATE: 20230120
